FAERS Safety Report 4524602-7 (Version None)
Quarter: 2004Q4

REPORT INFORMATION
  Report Type: 
  Country: None (occurrence: None)
  Receive Date: 20041117
  Receipt Date: 20040401
  Transmission Date: 20050328
  Serious: Yes (Hospitalization)
  Sender: FDA-Public Use
  Company Number: US-JNJFOC-20040902269

PATIENT
  Age: 78 Year
  Sex: Female
  Weight: 50.8029 kg

DRUGS (2)
  1. LEVAQUIN [Suspect]
     Indication: PNEUMONIA
     Dosage: 500 MG, INTRAVENOUS
     Route: 042
     Dates: start: 20040329, end: 20040401
  2. DIGOXIN [Concomitant]

REACTIONS (3)
  - CLOSTRIDIAL INFECTION [None]
  - INJECTION SITE THROMBOSIS [None]
  - PATHOGEN RESISTANCE [None]
